FAERS Safety Report 8401704-6 (Version None)
Quarter: 2012Q2

REPORT INFORMATION
  Report Type: 
  Country: None (occurrence: None)
  Receive Date: 20120529
  Receipt Date: 20091127
  Transmission Date: 20120825
  Serious: Yes (Other)
  Sender: FDA-Public Use
  Company Number: 008146

PATIENT
  Age: 70 Year
  Sex: Male

DRUGS (2)
  1. PLETAL [Suspect]
     Indication: PERIPHERAL ARTERIAL OCCLUSIVE DISEASE
     Dosage: 100 MG, BID, ORAL
     Route: 048
     Dates: start: 20091001, end: 20091030
  2. TAMSULOSIN HYDROCHLORIDE [Concomitant]

REACTIONS (1)
  - CONVULSION [None]
